FAERS Safety Report 8267304-6 (Version None)
Quarter: 2012Q2

REPORT INFORMATION
  Report Type: 
  Country: None (occurrence: None)
  Receive Date: 20120409
  Receipt Date: 20120326
  Transmission Date: 20120825
  Serious: Yes (Hospitalization)
  Sender: FDA-Public Use
  Company Number: JP-ASTELLAS-2012US002788

PATIENT
  Age: 62 Year
  Sex: Male

DRUGS (1)
  1. AMBISOME [Suspect]
     Indication: PULMONARY MYCOSIS
     Dosage: UNK
     Route: 042

REACTIONS (1)
  - CARDIAC FAILURE [None]
